FAERS Safety Report 7126711-5 (Version None)
Quarter: 2010Q4

REPORT INFORMATION
  Report Type: 
  Country: None (occurrence: None)
  Receive Date: 20101129
  Receipt Date: 20101118
  Transmission Date: 20110411
  Serious: Yes (Other)
  Sender: FDA-Public Use
  Company Number: DE-GILEAD-DE-CVT-100357

PATIENT
  Sex: Female

DRUGS (12)
  1. RANEXA [Suspect]
     Indication: ANGINA PECTORIS
     Route: 048
     Dates: start: 20100401, end: 20100801
  2. MARCUMAR [Suspect]
     Indication: ATRIAL FIBRILLATION
     Route: 048
  3. SEROQUEL [Concomitant]
  4. HYDROMORPHONE HCL [Concomitant]
  5. NEURONTIN [Concomitant]
  6. MELPERON [Concomitant]
  7. NOVALGIN                           /00039501/ [Concomitant]
  8. AMLODIPINE [Concomitant]
  9. TORASEMIDE [Concomitant]
  10. DIGITOXIN [Concomitant]
  11. VALSARTAN [Concomitant]
  12. OMEPRAZOLE [Concomitant]

REACTIONS (2)
  - DRUG INTERACTION [None]
  - INTERNATIONAL NORMALISED RATIO INCREASED [None]
